FAERS Safety Report 6675087-6 (Version None)
Quarter: 2010Q2

REPORT INFORMATION
  Report Type: 
  Country: None (occurrence: None)
  Receive Date: 20100409
  Receipt Date: 20100406
  Transmission Date: 20101027
  Serious: Yes (Death, Hospitalization)
  Sender: FDA-Public Use
  Company Number: HR-ABBOTT-10P-216-0636885-00

PATIENT
  Sex: Female

DRUGS (8)
  1. ZEMPLAR [Suspect]
     Indication: HYPERPARATHYROIDISM SECONDARY
     Dosage: 5-7 MCG 3 TIMES A WEEK
  2. RENAGEL [Concomitant]
     Indication: DRUG USE FOR UNKNOWN INDICATION
     Dosage: 800MG;1600MG;800MG
  3. DECORTIN [Concomitant]
     Indication: DRUG USE FOR UNKNOWN INDICATION
  4. PHYSIOTENS [Concomitant]
     Indication: DRUG USE FOR UNKNOWN INDICATION
  5. AMONEX [Concomitant]
     Indication: DRUG USE FOR UNKNOWN INDICATION
  6. OIKAMID [Concomitant]
     Indication: DRUG USE FOR UNKNOWN INDICATION
     Dosage: 400-600MG (1 OR 2 CAPSULES A DAY)
  7. CORYOL [Concomitant]
     Indication: DRUG USE FOR UNKNOWN INDICATION
     Dosage: 1X1 TBL, 12.5 MG DAILY DOSE
  8. MOVALLS [Concomitant]
     Indication: DRUG USE FOR UNKNOWN INDICATION

REACTIONS (6)
  - CARDIAC FAILURE [None]
  - CEREBROVASCULAR ACCIDENT [None]
  - CONTUSION [None]
  - FALL [None]
  - HEAD INJURY [None]
  - RIB FRACTURE [None]
